FAERS Safety Report 16019039 (Version 2)
Quarter: 2019Q1

REPORT INFORMATION
  Report Type: Spontaneous
  Country: JP (occurrence: JP)
  Receive Date: 20190228
  Receipt Date: 20190326
  Transmission Date: 20190418
  Serious: Yes (Hospitalization, Other)
  Sender: FDA-Public Use
  Company Number: IND-JP-009507513-1902JPN002021J

PATIENT
  Age: 46 Year
  Sex: Female
  Weight: 53 kg

DRUGS (13)
  1. ESLAX INTRAVENOUS 25MG/2.5ML [Suspect]
     Active Substance: ROCURONIUM BROMIDE
     Dosage: 15MG/HR
  2. ROPIVACAINE HCL [Suspect]
     Active Substance: ROPIVACAINE HYDROCHLORIDE
     Indication: ANAESTHESIA PROCEDURE
     Dosage: 50 MILLILITER, 4ML/HR
     Route: 008
  3. LIDOCAINE. [Concomitant]
     Active Substance: LIDOCAINE
     Dosage: 3 MILLILITER
     Route: 065
  4. ESLAX INTRAVENOUS 25MG/2.5ML [Suspect]
     Active Substance: ROCURONIUM BROMIDE
     Indication: NEUROMUSCULAR BLOCKING THERAPY
     Dosage: 50 MILLIGRAM
     Route: 041
  5. PROPOFOL. [Suspect]
     Active Substance: PROPOFOL
     Indication: ANAESTHESIA PROCEDURE
     Dosage: 100 MILLIGRAM
     Route: 041
  6. ROPIVACAINE HCL [Suspect]
     Active Substance: ROPIVACAINE HYDROCHLORIDE
     Indication: ANAESTHESIA PROCEDURE
     Dosage: 5 MILLILITER
     Route: 008
  7. ROPIVACAINE HCL [Suspect]
     Active Substance: ROPIVACAINE HYDROCHLORIDE
     Dosage: 3 MILLILITER
     Route: 008
  8. FENTANYL. [Suspect]
     Active Substance: FENTANYL
     Dosage: 10 MILLILITER
     Route: 008
  9. BRIDION [Concomitant]
     Active Substance: SUGAMMADEX
     Indication: NEUROMUSCULAR BLOCKADE REVERSAL
     Dosage: 200 MILLIGRAM
     Route: 041
  10. ACETAMINOPHEN. [Concomitant]
     Active Substance: ACETAMINOPHEN
     Dosage: 1000 MILLIGRAM
     Route: 041
  11. FENTANYL. [Suspect]
     Active Substance: FENTANYL
     Dosage: 0.05 MILLIGRAM
     Route: 008
  12. SEVOFLURANE. [Suspect]
     Active Substance: SEVOFLURANE
     Indication: ANAESTHESIA PROCEDURE
     Dosage: 1.2 PERCENT
     Route: 041
  13. FENTANYL. [Suspect]
     Active Substance: FENTANYL
     Indication: ANAESTHESIA PROCEDURE
     Dosage: 0.1 MILLIGRAM
     Route: 041

REACTIONS (1)
  - Atrioventricular block second degree [Recovered/Resolved]
